FAERS Safety Report 7940980-0 (Version None)
Quarter: 2011Q4

REPORT INFORMATION
  Report Type: 
  Country: None (occurrence: None)
  Receive Date: 20111128
  Receipt Date: 20111117
  Transmission Date: 20120403
  Serious: Yes (Death, Other)
  Sender: FDA-Public Use
  Company Number: TR-TYCO HEALTHCARE/MALLINCKRODT-T201101308

PATIENT
  Age: 90 Year
  Sex: Female

DRUGS (6)
  1. DICLOFENAC POTASSIUM [Concomitant]
     Indication: ARTHRALGIA
  2. DRUGS TO FACILITATE BREATHING [Concomitant]
  3. EXALGO [Suspect]
     Indication: CANCER PAIN
     Dosage: 8 MG
     Route: 048
     Dates: start: 20110620, end: 20110620
  4. DICLOFENAC POTASSIUM [Concomitant]
     Indication: CANCER PAIN
  5. EXALGO [Suspect]
     Indication: ARTHRALGIA
  6. DIABETES MEDICATIONS [Concomitant]
     Indication: DIABETES MELLITUS
     Dosage: UNK

REACTIONS (8)
  - RENAL FUNCTION TEST ABNORMAL [None]
  - CHRONIC OBSTRUCTIVE PULMONARY DISEASE [None]
  - DYSPNOEA [None]
  - SPEECH DISORDER [None]
  - REFUSAL OF TREATMENT BY RELATIVE [None]
  - BLOOD UREA INCREASED [None]
  - SEDATION [None]
  - BLOOD GLUCOSE INCREASED [None]
